FAERS Safety Report 5316946-6 (Version None)
Quarter: 2007Q2

REPORT INFORMATION
  Report Type: 
  Country: None (occurrence: None)
  Receive Date: 20070501
  Receipt Date: 20070501
  Transmission Date: 20071010
  Serious: Yes (Hospitalization)
  Sender: FDA-Public Use
  Company Number: None

PATIENT
  Age: 48 Year
  Sex: Female
  Weight: 70.3075 kg

DRUGS (2)
  1. TOBRAMYCIN [Suspect]
     Indication: CONDITION AGGRAVATED
     Dosage: TOBRAMYCIN   300MG  IV
     Route: 042
     Dates: start: 20061031, end: 20061209
  2. TOBRAMYCIN [Suspect]
     Indication: CYSTIC FIBROSIS
     Dosage: TOBRAMYCIN   300MG  IV
     Route: 042
     Dates: start: 20061031, end: 20061209

REACTIONS (6)
  - BALANCE DISORDER [None]
  - FALL [None]
  - NAUSEA [None]
  - OTOTOXICITY [None]
  - RENAL FAILURE ACUTE [None]
  - VESTIBULAR DISORDER [None]
